FAERS Safety Report 5472951-0 (Version None)
Quarter: 2007Q4

REPORT INFORMATION
  Report Type: 
  Country: None (occurrence: None)
  Receive Date: 20071001
  Receipt Date: 20070130
  Transmission Date: 20080405
  Serious: No
  Sender: FDA-Public Use
  Company Number: US-ASTRAZENECA-2007UW00485

PATIENT
  Age: 65 Year
  Sex: Female
  Weight: 90.7 kg

DRUGS (9)
  1. ARIMIDEX [Suspect]
     Indication: BREAST CANCER
     Route: 048
     Dates: start: 20060601
  2. OTC DECONGESTANT [Suspect]
  3. DIOVAN [Concomitant]
  4. DITROPAN [Concomitant]
  5. NEXIUM [Concomitant]
  6. ASPIRIN [Concomitant]
  7. CALTRATE [Concomitant]
  8. VYTORIN [Concomitant]
  9. GLUCOSAMINE CHONDROITIN [Concomitant]
     Dates: start: 20060501

REACTIONS (2)
  - ABNORMAL DREAMS [None]
  - INSOMNIA [None]
